FAERS Safety Report 10543239 (Version 5)
Quarter: 2015Q3

REPORT INFORMATION
  Report Type: Report from Study
  Country: DE (occurrence: DE)
  Receive Date: 20141027
  Receipt Date: 20150727
  Transmission Date: 20151125
  Serious: Yes (Death, Hospitalization, Other)
  Sender: FDA-Public Use
  Company Number: DE-ROCHE-1365083

PATIENT
  Age: 74 Year
  Sex: Female
  Weight: 60 kg

DRUGS (25)
  1. 5-FLUOROURACIL [Concomitant]
     Active Substance: FLUOROURACIL
     Indication: COLORECTAL CANCER
     Dosage: ON D1-D2
     Route: 040
     Dates: start: 20130719, end: 20130817
  2. OXALIPLATIN. [Concomitant]
     Active Substance: OXALIPLATIN
     Indication: COLORECTAL CANCER
     Dosage: DOSAGES BETWEEN 130MG AND 150MG
     Route: 042
     Dates: start: 20130719, end: 20130920
  3. OXALIPLATIN. [Concomitant]
     Active Substance: OXALIPLATIN
     Dosage: 2 CYCLES
     Route: 042
     Dates: start: 20131230, end: 20140121
  4. ALIZAPRIDE [Concomitant]
     Active Substance: ALIZAPRIDE
     Indication: NAUSEA
  5. CETUXIMAB [Concomitant]
     Active Substance: CETUXIMAB
     Indication: COLORECTAL CANCER
     Dosage: 7 CYCLES: 650-400 MG
     Route: 042
     Dates: start: 20131011, end: 20131206
  6. 5-FLUOROURACIL [Concomitant]
     Active Substance: FLUOROURACIL
     Dosage: FROM 06 TO 08-SEP-2013: 800 MG
     Route: 041
     Dates: start: 20130719, end: 20140122
  7. METOCLOPRAMID [Concomitant]
     Active Substance: METOCLOPRAMIDE
     Indication: NAUSEA
  8. SODIUM PICOSULFATE [Concomitant]
     Active Substance: SODIUM PICOSULFATE
     Indication: CONSTIPATION
     Route: 048
     Dates: end: 20140125
  9. BEVACIZUMAB [Suspect]
     Active Substance: BEVACIZUMAB
     Indication: COLORECTAL CANCER
     Route: 042
     Dates: start: 20130719, end: 20130816
  10. SPIRONOLACTONE. [Concomitant]
     Active Substance: SPIRONOLACTONE
     Indication: OEDEMA
     Route: 048
     Dates: end: 20140125
  11. 5-FLUOROURACIL [Concomitant]
     Active Substance: FLUOROURACIL
     Route: 040
     Dates: start: 20130719, end: 20130817
  12. 5-FLUOROURACIL [Concomitant]
     Active Substance: FLUOROURACIL
     Dosage: DOSAGES BETWEEN 600MG AND 700MG
     Route: 040
     Dates: start: 20130719, end: 20140122
  13. IBUPROFEN. [Concomitant]
     Active Substance: IBUPROFEN
     Indication: PAIN
  14. PANITUMUMAB [Concomitant]
     Active Substance: PANITUMUMAB
     Indication: COLORECTAL CANCER
     Dosage: 300-350 MG: 2CYCLES
     Route: 042
     Dates: start: 20131230, end: 20140121
  15. 5-FLUOROURACIL [Concomitant]
     Active Substance: FLUOROURACIL
     Dosage: ON D1-D2
     Route: 041
     Dates: start: 20130906, end: 20130907
  16. 5-FLUOROURACIL [Concomitant]
     Active Substance: FLUOROURACIL
     Dosage: ON D1-D2
     Route: 041
     Dates: start: 20130719, end: 20140122
  17. 5-FLUOROURACIL [Concomitant]
     Active Substance: FLUOROURACIL
     Dosage: ON D1-D2
     Route: 040
     Dates: start: 20130920, end: 20130921
  18. ONDANSETRON [Concomitant]
     Active Substance: ONDANSETRON
     Indication: NAUSEA
  19. IRINOTECAN [Concomitant]
     Active Substance: IRINOTECAN
     Indication: COLORECTAL CANCER
     Dosage: 3 CYCLES: 300-250 MG
     Route: 042
     Dates: start: 20131011, end: 20131129
  20. 5-FLUOROURACIL [Concomitant]
     Active Substance: FLUOROURACIL
     Dosage: ON D1-D2
     Route: 040
     Dates: start: 20130906, end: 20130907
  21. FOLINIC ACID [Concomitant]
     Active Substance: LEUCOVORIN
     Indication: COLORECTAL CANCER
     Dosage: DOSAGES BETWEEN 300MG AND 340MG?ON D1-D2
     Route: 042
     Dates: start: 20130719, end: 20140122
  22. FOLINIC ACID [Concomitant]
     Active Substance: LEUCOVORIN
     Dosage: DOSAGES BETWEEN 300MG AND 340MG
     Route: 042
     Dates: end: 20140122
  23. BEVACIZUMAB [Suspect]
     Active Substance: BEVACIZUMAB
     Route: 042
     Dates: end: 20130920
  24. L-THYROXIN [Concomitant]
     Active Substance: LEVOTHYROXINE SODIUM
     Indication: HYPOTHYROIDISM
     Route: 048
     Dates: end: 20140125
  25. PANTOPRAZOLE SODIUM. [Concomitant]
     Active Substance: PANTOPRAZOLE SODIUM
     Indication: PROPHYLAXIS
     Route: 048
     Dates: start: 20140125

REACTIONS (9)
  - Urinary tract disorder [Recovered/Resolved]
  - Posterior reversible encephalopathy syndrome [Fatal]
  - Blood alkaline phosphatase increased [Unknown]
  - Coma [Fatal]
  - Metastases to liver [Fatal]
  - Renal disorder [Recovered/Resolved]
  - Blood creatinine increased [Recovered/Resolved]
  - Epilepsy [Fatal]
  - Diarrhoea [Recovered/Resolved]

NARRATIVE: CASE EVENT DATE: 20130830
